FAERS Safety Report 6851018-0 (Version None)
Quarter: 2010Q3

REPORT INFORMATION
  Report Type: 
  Country: None (occurrence: None)
  Receive Date: 20100716
  Receipt Date: 20071026
  Transmission Date: 20110219
  Serious: No
  Sender: FDA-Public Use
  Company Number: US-PFIZER INC-2007091601

PATIENT
  Sex: Female
  Weight: 97.7 kg

DRUGS (2)
  1. CHANTIX [Suspect]
     Indication: SMOKING CESSATION THERAPY
     Dates: start: 20070701, end: 20070101
  2. BUPROPION [Concomitant]
     Indication: DEPRESSION

REACTIONS (7)
  - DEPRESSION [None]
  - DIARRHOEA [None]
  - FLATULENCE [None]
  - MALAISE [None]
  - NAUSEA [None]
  - SOMNOLENCE [None]
  - VOMITING [None]
